FAERS Safety Report 4919063-X (Version None)
Quarter: 2006Q1

REPORT INFORMATION
  Report Type: 
  Country: None (occurrence: None)
  Receive Date: 20060216
  Receipt Date: 20060130
  Transmission Date: 20060701
  Serious: No
  Sender: FDA-Public Use
  Company Number: US200601002594

PATIENT
  Age: 41 Year
  Sex: Female

DRUGS (8)
  1. CYMBALTA [Suspect]
     Dosage: 60 MG; 30 MG
     Dates: start: 20050927, end: 20060110
  2. CYMBALTA [Suspect]
     Dosage: 60 MG; 30 MG
     Dates: start: 20060111
  3. ZYPREXA [Concomitant]
  4. LIPITOR [Concomitant]
  5. MOTRIN [Concomitant]
  6. VICODIN [Concomitant]
  7. ATIVAN [Concomitant]
  8. FASTIN [Concomitant]

REACTIONS (5)
  - ALANINE AMINOTRANSFERASE INCREASED [None]
  - ASPARTATE AMINOTRANSFERASE INCREASED [None]
  - HYPOAESTHESIA [None]
  - PHARMACEUTICAL PRODUCT COMPLAINT [None]
  - RED BLOOD CELL SEDIMENTATION RATE INCREASED [None]
